FAERS Safety Report 8931841 (Version 1)
Quarter: 2012Q4

REPORT INFORMATION
  Report Type: 
  Country: CO (occurrence: CO)
  Receive Date: 20121128
  Receipt Date: 20121128
  Transmission Date: 20130627
  Serious: Yes (Hospitalization)
  Sender: FDA-Public Use
  Company Number: CO-ELI_LILLY_AND_COMPANY-CO201211006240

PATIENT
  Age: 24 Year
  Sex: Female

DRUGS (1)
  1. HUMALOG LISPRO [Suspect]
     Indication: TYPE 1 DIABETES MELLITUS
     Dosage: 87 u, qd
     Route: 058
     Dates: start: 20120723

REACTIONS (3)
  - Hypoglycaemia [Recovering/Resolving]
  - Hyperglycaemia [Recovering/Resolving]
  - Exposure during pregnancy [Not Recovered/Not Resolved]
